FAERS Safety Report 4555218-4 (Version None)
Quarter: 2004Q4

REPORT INFORMATION
  Report Type: 
  Country: None (occurrence: None)
  Receive Date: 20041217
  Receipt Date: 20040830
  Transmission Date: 20050328
  Serious: No
  Sender: FDA-Public Use
  Company Number: 2004-BP-07454BP

PATIENT
  Age: 74 Year
  Sex: Female

DRUGS (3)
  1. SPIRIVA [Suspect]
     Indication: CHRONIC OBSTRUCTIVE AIRWAYS DISEASE
     Dosage: 18 MCG (18 MCG), IH
     Route: 055
  2. SPIRIVA [Suspect]
  3. VIOXX [Concomitant]

REACTIONS (3)
  - ABDOMINAL DISTENSION [None]
  - URINARY RETENTION [None]
  - URINARY TRACT INFECTION [None]
